FAERS Safety Report 22155588 (Version 3)
Quarter: 2025Q1

REPORT INFORMATION
  Report Type: Spontaneous
  Country: RU (occurrence: RU)
  Receive Date: 20230330
  Receipt Date: 20250103
  Transmission Date: 20250408
  Serious: Yes (Other)
  Sender: ROCHE
  Company Number: RU-ROCHE-3318047

PATIENT
  Age: 35 Year
  Sex: Female

DRUGS (5)
  1. TRASTUZUMAB [Suspect]
     Active Substance: TRASTUZUMAB
     Indication: Breast cancer
     Route: 065
     Dates: start: 20200326, end: 20200708
  2. PERTUZUMAB [Suspect]
     Active Substance: PERTUZUMAB
     Indication: Breast cancer
     Route: 065
     Dates: start: 20200326, end: 20200708
  3. EMPEGFILGRASTIM [Suspect]
     Active Substance: EMPEGFILGRASTIM
     Indication: Breast cancer
     Route: 065
     Dates: start: 20200326, end: 20200708
  4. CARBOPLATIN [Suspect]
     Active Substance: CARBOPLATIN
     Indication: Breast cancer
     Route: 065
     Dates: start: 20200326, end: 20200708
  5. DOCETAXEL [Suspect]
     Active Substance: DOCETAXEL
     Indication: Breast cancer
     Route: 065
     Dates: start: 20200326, end: 20200708

REACTIONS (2)
  - Breast neoplasm [Unknown]
  - Maternal exposure before pregnancy [Unknown]
